FAERS Safety Report 12842656 (Version 2)
Quarter: 2016Q4

REPORT INFORMATION
  Report Type: Spontaneous
  Country: US (occurrence: US)
  Receive Date: 20161013
  Receipt Date: 20161015
  Transmission Date: 20170207
  Serious: No
  Sender: FDA-Public Use
  Company Number: US-SUN PHARMACEUTICAL INDUSTRIES LTD-2016US-116148

PATIENT
  Sex: Female

DRUGS (1)
  1. ALENDRONATE [Suspect]
     Active Substance: ALENDRONATE SODIUM
     Indication: PRODUCT USED FOR UNKNOWN INDICATION
     Dosage: 1 DF, 1/WEEK
     Route: 065
     Dates: start: 2016

REACTIONS (6)
  - Arthralgia [Unknown]
  - Muscle spasms [Unknown]
  - Abdominal distension [Unknown]
  - Dyspepsia [Unknown]
  - Diarrhoea [Unknown]
  - Eye irritation [Unknown]

NARRATIVE: CASE EVENT DATE: 2016
